FAERS Safety Report 7996820-7 (Version None)
Quarter: 2011Q4

REPORT INFORMATION
  Report Type: 
  Country: None (occurrence: None)
  Receive Date: 20111221
  Receipt Date: 20111213
  Transmission Date: 20120403
  Serious: Yes (Other)
  Sender: FDA-Public Use
  Company Number: US-JNJFOC-20110903405

PATIENT
  Sex: Female
  Weight: 61.78 kg

DRUGS (3)
  1. DOXIL [Suspect]
     Indication: NON-HODGKIN'S LYMPHOMA
     Route: 042
  2. DOXORUBICIN HCL [Suspect]
     Indication: NON-HODGKIN'S LYMPHOMA
     Route: 065
  3. DOXIL [Suspect]
     Route: 042
     Dates: start: 20110906, end: 20110906

REACTIONS (5)
  - FLUSHING [None]
  - HYPOTENSION [None]
  - CHILLS [None]
  - MEDICATION ERROR [None]
  - WRONG TECHNIQUE IN DRUG USAGE PROCESS [None]
